FAERS Safety Report 12552146 (Version 1)
Quarter: 2016Q3

REPORT INFORMATION
  Report Type: Spontaneous
  Country: FR (occurrence: FR)
  Receive Date: 20160713
  Receipt Date: 20160713
  Transmission Date: 20161109
  Serious: Yes (Death, Hospitalization)
  Sender: FDA-Public Use
  Company Number: FR-BAXTER-2016BAX035399

PATIENT
  Age: 76 Year
  Sex: Male

DRUGS (16)
  1. VITAMIN B12 [Concomitant]
     Active Substance: CYANOCOBALAMIN
     Indication: PRODUCT USED FOR UNKNOWN INDICATION
     Route: 065
  2. HOLOXAN 2000 MG, POUDRE POUR USAGE PARENT?RAL [Suspect]
     Active Substance: IFOSFAMIDE
     Dosage: DAILY DURING 3 DAYS; CYCLICAL IV INFUSION; THIRD COURSE
     Route: 042
     Dates: start: 20160513, end: 20160516
  3. DOXORUBICINE TEVA [Suspect]
     Active Substance: DOXORUBICIN
     Dosage: DAILY DURING 3 DAYS; CYCLICAL IV INFUSION; THIRD COURSE
     Route: 042
     Dates: start: 20160513, end: 20160516
  4. HOLOXAN 2000 MG, POUDRE POUR USAGE PARENT?RAL [Suspect]
     Active Substance: IFOSFAMIDE
     Dosage: DAILY DURING 3 DAYS; CYCLICAL IV INFUSION; SECOND COURSE
     Route: 042
  5. BIPRETERAX [Concomitant]
     Active Substance: INDAPAMIDE\PERINDOPRIL
     Indication: PRODUCT USED FOR UNKNOWN INDICATION
     Route: 065
  6. UROMITEXAN 5 G/50 ML, SOLUTION INJECTABLE POUR PERFUSION EN FLACON [Suspect]
     Active Substance: MESNA
     Indication: SARCOMA
     Route: 065
  7. EMEND [Concomitant]
     Active Substance: APREPITANT
     Indication: PRODUCT USED FOR UNKNOWN INDICATION
     Route: 065
  8. TAHOR [Concomitant]
     Active Substance: ATORVASTATIN CALCIUM
     Indication: PRODUCT USED FOR UNKNOWN INDICATION
     Route: 065
  9. DIFFU-K [Concomitant]
     Active Substance: POTASSIUM CHLORIDE
     Indication: PRODUCT USED FOR UNKNOWN INDICATION
     Route: 065
  10. ARANESP [Concomitant]
     Active Substance: DARBEPOETIN ALFA
     Indication: PRODUCT USED FOR UNKNOWN INDICATION
     Route: 065
  11. DOXORUBICINE TEVA [Suspect]
     Active Substance: DOXORUBICIN
     Dosage: DAILY DURING 3 DAYS; CYCLICAL IV INFUSION; SECOND COURSE
     Route: 042
  12. ONDANSETRON [Concomitant]
     Active Substance: ONDANSETRON
     Indication: PRODUCT USED FOR UNKNOWN INDICATION
     Route: 065
  13. SPECIAFOLDINE [Concomitant]
     Active Substance: FOLIC ACID
     Indication: PRODUCT USED FOR UNKNOWN INDICATION
     Route: 065
  14. HOLOXAN 2000 MG, POUDRE POUR USAGE PARENT?RAL [Suspect]
     Active Substance: IFOSFAMIDE
     Indication: SARCOMA
     Dosage: DAILY DURING 3 DAYS; CYCLICAL IV INFUSION; FIRST COURSE
     Route: 042
     Dates: start: 20160401
  15. DOXORUBICINE TEVA [Suspect]
     Active Substance: DOXORUBICIN
     Indication: SARCOMA
     Dosage: DAILY DURING 3 DAYS; CYCLICAL IV INFUSION; FIRST COURSE
     Route: 042
     Dates: start: 20160401
  16. PLITICAN [Concomitant]
     Active Substance: ALIZAPRIDE HYDROCHLORIDE
     Indication: PRODUCT USED FOR UNKNOWN INDICATION
     Route: 065

REACTIONS (2)
  - Bone marrow failure [Fatal]
  - Septic shock [Fatal]

NARRATIVE: CASE EVENT DATE: 20160521
